FAERS Safety Report 8065884-7 (Version None)
Quarter: 2012Q1

REPORT INFORMATION
  Report Type: 
  Country: None (occurrence: None)
  Receive Date: 20120124
  Receipt Date: 20120116
  Transmission Date: 20120608
  Serious: Yes (Hospitalization)
  Sender: FDA-Public Use
  Company Number: US-BAYER-2012-006590

PATIENT
  Age: 39 Year
  Sex: Female
  Weight: 99 kg

DRUGS (17)
  1. YAZ [Suspect]
  2. PROMETHAZINE W/ CODEINE [Concomitant]
     Indication: COUGH
     Dosage: UNK UNK, HS
  3. YAZ [Suspect]
     Indication: CONTRACEPTION
     Dosage: UNK
     Dates: start: 20040101, end: 20080601
  4. MULTI-VITAMINS [Concomitant]
     Indication: SUPPLEMENTATION THERAPY
     Dosage: UNK UNK, QD
     Dates: start: 20070101
  5. YASMIN [Suspect]
     Indication: PREMENSTRUAL SYNDROME
  6. SYNTHROID [Concomitant]
     Indication: HYPOTHYROIDISM
     Dosage: 100 MG, QD
     Dates: start: 19960101
  7. PREVACID [Concomitant]
     Indication: GASTROOESOPHAGEAL REFLUX DISEASE
     Dosage: 30 MG, PRN
     Dates: start: 19960101
  8. PREDNISONE TAB [Concomitant]
     Indication: COUGH
  9. ADVAIR DISKUS 100/50 [Concomitant]
     Indication: ASTHMA
     Dosage: UNK UNK, PRN
     Dates: start: 20060101
  10. PREDNISONE TAB [Concomitant]
     Indication: RHINITIS ALLERGIC
     Dosage: 5 MG, 5ID
  11. LEXAPRO [Concomitant]
     Dosage: 10 MG, QD
  12. YASMIN [Suspect]
  13. ALLERGY SHOT [Concomitant]
     Dosage: UNK UNK, OW
  14. YASMIN [Suspect]
     Indication: CONTRACEPTION
     Dosage: UNK
     Dates: start: 20040101, end: 20080601
  15. YAZ [Suspect]
     Indication: PREMENSTRUAL SYNDROME
  16. VITAMIN B-12 [Concomitant]
     Indication: SUPPLEMENTATION THERAPY
     Dosage: UNK UNK, QD
     Dates: start: 20070101
  17. ZYRTEC [Concomitant]
     Indication: MULTIPLE ALLERGIES
     Dosage: 10 MG, PRN

REACTIONS (4)
  - CHOLECYSTITIS CHRONIC [None]
  - GALLBLADDER DISORDER [None]
  - ABDOMINAL PAIN [None]
  - PROCEDURAL PAIN [None]
